FAERS Safety Report 8881308 (Version 2)
Quarter: 2013Q2

REPORT INFORMATION
  Report Type: Spontaneous
  Country: US (occurrence: None)
  Receive Date: 20120501
  Receipt Date: 20120809
  Transmission Date: 20140414
  Serious: Yes (Hospitalization)
  Sender: FDA-Public Use
  Company Number: 2012031021

PATIENT
  Age: 69 Year
  Sex: Female
  Weight: 68.04 kg

DRUGS (3)
  1. BERINERT [Suspect]
     Indication: HEREDITARY ANGIOEDEMA
  2. KALBITOR [Suspect]
     Indication: HEREDITARY ANGIOEDEMA
     Route: 058
     Dates: start: 20120111, end: 20120111
  3. CINRYZE (COMPLEMENT C1 ESTERASE INHIBITOR) [Concomitant]

REACTIONS (1)
  - Drug ineffective [None]
